FAERS Safety Report 5874792-9 (Version None)
Quarter: 2008Q3

REPORT INFORMATION
  Report Type: 
  Country: None (occurrence: None)
  Receive Date: 20080908
  Receipt Date: 20080908
  Transmission Date: 20090109
  Serious: Yes (Death)
  Sender: FDA-Public Use
  Company Number: None

PATIENT
  Sex: Female
  Weight: 75.7507 kg

DRUGS (1)
  1. DURAGESIC-75 [Suspect]
     Indication: BACK PAIN
     Dosage: 1 PATCH Q3D TD
     Route: 062
     Dates: start: 20051227

REACTIONS (1)
  - DEATH [None]
